FAERS Safety Report 8481178-X (Version None)
Quarter: 2012Q3

REPORT INFORMATION
  Report Type: 
  Country: None (occurrence: None)
  Receive Date: 20120702
  Receipt Date: 20120626
  Transmission Date: 20120928
  Serious: Yes (Other)
  Sender: FDA-Public Use
  Company Number: PHHY2012FR055685

PATIENT
  Sex: Female

DRUGS (9)
  1. XELODA [Concomitant]
     Dosage: 2500 MG/M2, UNK
     Dates: start: 20100719, end: 20111001
  2. ZOMETA [Suspect]
     Indication: METASTASES TO BONE
     Dosage: 4 MG, EVERY 3 WEEKS
     Dates: start: 20090326, end: 20110301
  3. NAVELBINE [Concomitant]
     Dosage: 60 MG/M2, UNK
     Dates: start: 20101021, end: 20101124
  4. AROMASIN [Concomitant]
     Dosage: UNK
     Dates: start: 20060101, end: 20100824
  5. XELODA [Concomitant]
     Dosage: 2000 MG/M2,
     Dates: end: 20100718
  6. NAVELBINE [Concomitant]
     Dosage: 80 MG/M2, UNK
     Dates: start: 20111125, end: 20120401
  7. AVASTIN [Concomitant]
     Dosage: UNK
     Dates: start: 20070901, end: 20100429
  8. AREDIA [Concomitant]
     Dosage: 90 MG, UNK
     Dates: start: 20090305
  9. FEMARA [Concomitant]
     Dosage: UNK
     Dates: start: 20090201, end: 20100429

REACTIONS (1)
  - OSTEONECROSIS OF JAW [None]
